FAERS Safety Report 25137342 (Version 1)
Quarter: 2025Q1

REPORT INFORMATION
  Report Type: Spontaneous
  Country: IT (occurrence: IT)
  Receive Date: 20250329
  Receipt Date: 20250329
  Transmission Date: 20250409
  Serious: Yes (Hospitalization, Other)
  Sender: TEVA
  Company Number: None

PATIENT
  Age: 13 Year
  Sex: Female
  Weight: 60 kg

DRUGS (3)
  1. OLANZAPINE [Suspect]
     Active Substance: OLANZAPINE
     Indication: Product used for unknown indication
     Route: 048
     Dates: start: 20250130, end: 20250216
  2. AMISULPRIDE [Suspect]
     Active Substance: AMISULPRIDE
     Indication: Product used for unknown indication
     Dosage: 50MG/DAY FROM 01/28 TO 02/06?DOSAGE REDUCED TO 25MG/DAY FROM 02/07 TO 02/16
     Route: 048
     Dates: start: 20250128, end: 20250216
  3. LAMOTRIGINE [Suspect]
     Active Substance: LAMOTRIGINE
     Indication: Product used for unknown indication
     Dosage: 50MG/DAY FROM 01/27 TO 02/03?DOSAGE INCREASED TO 100MG/DAY FROM 02/04 TO 02/15
     Route: 048
     Dates: start: 20250127, end: 20250215

REACTIONS (1)
  - Stevens-Johnson syndrome [Recovering/Resolving]

NARRATIVE: CASE EVENT DATE: 20250210
